FAERS Safety Report 8339808-9 (Version None)
Quarter: 2012Q2

REPORT INFORMATION
  Report Type: 
  Country: None (occurrence: None)
  Receive Date: 20120507
  Receipt Date: 20120427
  Transmission Date: 20120825
  Serious: Yes (Hospitalization)
  Sender: FDA-Public Use
  Company Number: US-BAYER-2011-115474

PATIENT
  Age: 21 Year
  Sex: Female
  Weight: 69.388 kg

DRUGS (4)
  1. YAZ [Suspect]
     Indication: ACNE
     Dosage: UNK
     Dates: start: 20071101, end: 20080201
  2. YAZ [Suspect]
     Dosage: UNK
     Dates: start: 20080701, end: 20090801
  3. ADDERALL XR 10 [Concomitant]
     Indication: ATTENTION DEFICIT/HYPERACTIVITY DISORDER
     Dosage: UNK
     Dates: start: 20000101
  4. SOLODYN [Concomitant]
     Dosage: 90 MG, UNK

REACTIONS (4)
  - BILIARY DYSKINESIA [None]
  - MENTAL DISORDER [None]
  - GALLBLADDER DISORDER [None]
  - PAIN [None]
